FAERS Safety Report 6638190-2 (Version None)
Quarter: 2010Q1

REPORT INFORMATION
  Report Type: 
  Country: None (occurrence: None)
  Receive Date: 20100315
  Receipt Date: 20100315
  Transmission Date: 20100710
  Serious: Yes (Death, Hospitalization)
  Sender: FDA-Public Use
  Company Number: None

PATIENT
  Age: 30 Year
  Sex: Male
  Weight: 80 kg

DRUGS (2)
  1. SULFADIAZINE [Suspect]
     Indication: NERVOUS SYSTEM DISORDER
     Dosage: 4000 MG DAILY ORAL 047
     Route: 048
  2. SULFADIAZINE [Suspect]
     Indication: TOXOPLASMOSIS
     Dosage: 4000 MG DAILY ORAL 047
     Route: 048

REACTIONS (6)
  - COAGULOPATHY [None]
  - DIARRHOEA [None]
  - JAUNDICE [None]
  - MALAISE [None]
  - MENTAL STATUS CHANGES [None]
  - RASH [None]
